FAERS Safety Report 10088645 (Version 1)
Quarter: 2014Q2

REPORT INFORMATION
  Report Type: Spontaneous
  Country: US (occurrence: US)
  Receive Date: 20140421
  Receipt Date: 20140421
  Transmission Date: 20141212
  Serious: No
  Sender: FDA-Public Use
  Company Number: US-BIOGENIDEC-2014BI032911

PATIENT
  Age: 43 Year
  Sex: Male
  Weight: 114 kg

DRUGS (14)
  1. TECFIDERA [Suspect]
     Indication: MULTIPLE SCLEROSIS
     Dates: start: 201401
  2. AMLODIPINE BESY-BENAZEPRIL HCL [Concomitant]
     Dates: start: 20131007
  3. ASPIRIN [Concomitant]
  4. ATORVASTATIN CALCIUM [Concomitant]
     Route: 048
     Dates: start: 20131203
  5. GABAPENTIN [Concomitant]
     Indication: PAIN IN EXTREMITY
     Dates: start: 20140312
  6. HYDROCHLORTHIAZIDE [Concomitant]
     Route: 048
     Dates: start: 20131209
  7. LEVETIRACETAM [Concomitant]
     Route: 048
     Dates: start: 20140331
  8. METHYLPHENIDATE HCL [Concomitant]
     Route: 048
     Dates: start: 20131121
  9. SERTRALINE HCL [Concomitant]
     Route: 048
     Dates: start: 20131128
  10. TAMSULOSIN HCL [Concomitant]
     Route: 048
     Dates: start: 20131218
  11. VIT B12 [Concomitant]
  12. VIT D [Concomitant]
     Route: 048
  13. KEPPRA [Concomitant]
     Indication: HEADACHE
  14. KEPPRA [Concomitant]
     Indication: PROPHYLAXIS

REACTIONS (1)
  - Multiple sclerosis [Unknown]
